FAERS Safety Report 9230201 (Version 1)
Quarter: 2013Q2

REPORT INFORMATION
  Report Type: Report from Study
  Country: CA (occurrence: CA)
  Receive Date: 20130415
  Receipt Date: 20130415
  Transmission Date: 20140414
  Serious: Yes (Other)
  Sender: FDA-Public Use
  Company Number: CA-JNJFOC-20130404911

PATIENT
  Age: 47 Year
  Sex: Male
  Weight: 110 kg

DRUGS (10)
  1. REMICADE [Suspect]
     Indication: RHEUMATOID ARTHRITIS
     Route: 042
     Dates: start: 200404
  2. METHOTREXATE [Concomitant]
     Dosage: 2.5 (UNIT UNSPECIFIED)
     Route: 065
  3. RAMIPRIL [Concomitant]
     Dosage: 10 (UNIT UNSPECIFIED)
     Route: 065
  4. PREDNISONE [Concomitant]
     Dosage: 5 (UNIT UNSPECIFIED)
     Route: 065
  5. NAPROSYN [Concomitant]
     Dosage: 375 (UNIT UNSPECIFIED)
     Route: 065
  6. HYDROCHLOROTHIAZIDE [Concomitant]
     Dosage: 2.5 (UNIT UNSPECIFIED)
     Route: 065
  7. ADALAT XL [Concomitant]
     Dosage: 30 (UNIT UNSPECIFIED)
     Route: 065
  8. EURO D [Concomitant]
     Dosage: 800 (UNIT UNSPECIFIED)
     Route: 065
  9. PREVACID [Concomitant]
     Dosage: 30 (UNIT UNSPECIFIED)
     Route: 065
  10. ACETYLSALICYLIC ACID [Concomitant]
     Dosage: 80 (UNIT UNSPECIFIED)
     Route: 065

REACTIONS (1)
  - Sciatica [Not Recovered/Not Resolved]
